FAERS Safety Report 16014731 (Version 1)
Quarter: 2019Q1

REPORT INFORMATION
  Report Type: Spontaneous
  Country: PT (occurrence: PT)
  Receive Date: 20190227
  Receipt Date: 20190227
  Transmission Date: 20190418
  Serious: Yes (Other)
  Sender: FDA-Public Use
  Company Number: PHHY2019PT042586

PATIENT
  Age: 50 Year
  Sex: Female

DRUGS (5)
  1. TEGRETOL [Suspect]
     Active Substance: CARBAMAZEPINE
     Indication: PAIN IN EXTREMITY
     Dosage: 400 MG, QD
     Route: 048
     Dates: start: 20190210, end: 20190210
  2. ALDACTONE [Concomitant]
     Active Substance: SPIRONOLACTONE
     Indication: HYPERTENSION
     Dosage: 50 MG, QD
     Route: 048
  3. NOLOTIL (METAMIZOLE MAGNESIUM) [Suspect]
     Active Substance: METAMIZOLE MAGNESIUM
     Indication: PAIN IN EXTREMITY
     Dosage: 575 MG, QD COMPRIMIDO DE LIBERTA??O PROLONGADA
     Route: 048
     Dates: start: 20190210, end: 20190210
  4. STAGID [Concomitant]
     Active Substance: METFORMIN PAMOATE
     Indication: DIABETES MELLITUS
     Dosage: 750 MG, QD
     Route: 048
  5. SALIPAX [Concomitant]
     Indication: DEPRESSION
     Dosage: 40 MG, QD INICIOU EM 04-2017, DUPLICOU DOSE DI?RIA EM 09-2018
     Route: 048
     Dates: start: 201809

REACTIONS (3)
  - Chromaturia [Recovered/Resolved]
  - Somnolence [Recovered/Resolved]
  - Fatigue [Recovered/Resolved]

NARRATIVE: CASE EVENT DATE: 20190210
